FAERS Safety Report 16050430 (Version 1)
Quarter: 2019Q1

REPORT INFORMATION
  Report Type: Spontaneous
  Country: US (occurrence: US)
  Receive Date: 20190308
  Receipt Date: 20190308
  Transmission Date: 20190418
  Serious: Yes (Other)
  Sender: FDA-Public Use
  Company Number: US-LUPIN PHARMACEUTICALS INC.-2019-01261

PATIENT
  Age: 40 Year
  Sex: Female
  Weight: 86.18 kg

DRUGS (5)
  1. DESVENLAFAXINE EXTENDED RELEASE TABLET 50 MG [Suspect]
     Active Substance: DESVENLAFAXINE
     Indication: BIPOLAR DISORDER
     Dosage: 1 DOSAGE FORM, QD
     Route: 048
     Dates: start: 201706
  2. INVOKAMET [Concomitant]
     Active Substance: CANAGLIFLOZIN\METFORMIN HYDROCHLORIDE
     Indication: DIABETES MELLITUS
     Dosage: 1 DOSAGE FORM, BID, STARTED TAKING 3 YEARS AGO
     Route: 048
  3. LAMICTAL [Concomitant]
     Active Substance: LAMOTRIGINE
     Indication: AFFECTIVE DISORDER
     Dosage: 2 DOSAGE FORM, QD
     Route: 048
  4. TROKENDI XR [Concomitant]
     Active Substance: TOPIRAMATE
     Indication: MIGRAINE
     Dosage: 200 MILLIGRAM, QD (STARTED TAKING 4 MONTHS AGO)
     Route: 048
  5. LAMICTAL [Concomitant]
     Active Substance: LAMOTRIGINE
     Indication: BIPOLAR DISORDER

REACTIONS (4)
  - Bipolar disorder [Not Recovered/Not Resolved]
  - Drug ineffective [Unknown]
  - Depressed mood [Not Recovered/Not Resolved]
  - Condition aggravated [Unknown]

NARRATIVE: CASE EVENT DATE: 201707
